FAERS Safety Report 8882253 (Version 1)
Quarter: 2012Q4

REPORT INFORMATION
  Report Type: Report from Study
  Country: FR (occurrence: FR)
  Receive Date: 20121105
  Receipt Date: 20121105
  Transmission Date: 20130627
  Serious: Yes (Other)
  Sender: FDA-Public Use
  Company Number: FR-BRISTOL-MYERS SQUIBB COMPANY-17078544

PATIENT
  Age: 63 Year
  Sex: Female
  Weight: 63 kg

DRUGS (12)
  1. ORENCIA [Suspect]
     Indication: RHEUMATOID ARTHRITIS
     Dosage: 23Mar12, Inf
     Route: 042
     Dates: start: 20120309
  2. METOJECT [Suspect]
     Indication: RHEUMATOID ARTHRITIS
     Dates: start: 2002
  3. SPECIAFOLDINE [Concomitant]
  4. DETENSIEL [Concomitant]
     Indication: HYPERTENSION
     Route: 048
  5. TAREG [Concomitant]
     Indication: HYPERTENSION
     Route: 048
  6. INEGY [Concomitant]
     Indication: HYPERCHOLESTEROLAEMIA
     Dosage: 40mg/day
     Route: 048
  7. ASPEGIC [Concomitant]
     Indication: PLATELET AGGREGATION INHIBITION
     Route: 048
  8. DAFALGAN [Concomitant]
     Indication: PAIN
     Route: 048
  9. RASILEZ [Concomitant]
     Indication: HYPERTENSION
     Route: 048
  10. LEVOTHYROX [Concomitant]
     Indication: HYPOTHYROIDISM
     Route: 048
  11. ZOPICLONE [Concomitant]
     Indication: INSOMNIA
     Route: 048
  12. OMEPRAZOLE [Concomitant]
     Route: 048
     Dates: start: 20111116

REACTIONS (2)
  - Arthralgia [Recovered/Resolved]
  - Diarrhoea [Recovered/Resolved]
